FAERS Safety Report 4386835-2 (Version None)
Quarter: 2004Q2

REPORT INFORMATION
  Report Type: 
  Country: None (occurrence: None)
  Receive Date: 20040622
  Receipt Date: 20030320
  Transmission Date: 20050107
  Serious: Yes (Hospitalization)
  Sender: FDA-Public Use
  Company Number: F02200300040

PATIENT
  Age: 69 Year
  Sex: Male

DRUGS (11)
  1. . [Concomitant]
  2. . [Concomitant]
  3. XATRAL - (ALFUZOSIN) - TABLET PR - 10 MG [Suspect]
     Indication: BENIGN NEOPLASM OF PROSTATE
     Dosage: 10 MG OD
     Route: 048
     Dates: start: 20001011
  4. DIAFUSOR (GLYCERYL TRINITRATE) [Concomitant]
  5. AMLODIPINE BESYLATE [Concomitant]
  6. LASIX [Concomitant]
  7. ZESTRIL [Concomitant]
  8. PHYSIOTENS (MOXONIDINE) [Concomitant]
  9. PRAXILENE (NAFTIDROFURYL OXALATE) [Concomitant]
  10. PRAVASTATIN SODIUM [Concomitant]
  11. PREVISCAN (FLUINDIONE) [Concomitant]

REACTIONS (6)
  - COLORECTAL CANCER METASTATIC [None]
  - CONSTIPATION [None]
  - HIATUS HERNIA [None]
  - HYDRONEPHROSIS [None]
  - METASTASES TO LIVER [None]
  - MICROCYTIC ANAEMIA [None]
